FAERS Safety Report 12154025 (Version 1)
Quarter: 2016Q1

REPORT INFORMATION
  Report Type: Spontaneous
  Country: JP (occurrence: JP)
  Receive Date: 20160307
  Receipt Date: 20160307
  Transmission Date: 20160526
  Serious: Yes (Hospitalization)
  Sender: FDA-Public Use
  Company Number: JP-ALKEM-001511

PATIENT
  Age: 93 Year
  Sex: Female
  Weight: 48 kg

DRUGS (1)
  1. QUETIAPINE/QUETIAPINE FUMARATE [Suspect]
     Active Substance: QUETIAPINE FUMARATE
     Indication: DELIRIUM
     Dosage: 12.5 MG AFTER SUPPER AND TWICE ADMINISTERED QUETIAPINE AT 25 (TOTAL 50 MG)MG AT 1-H INTERVALS

REACTIONS (6)
  - Extra dose administered [Unknown]
  - Hypercapnia [Recovered/Resolved]
  - Altered state of consciousness [Recovered/Resolved]
  - Hypotension [None]
  - Ventricular extrasystoles [Recovered/Resolved]
  - Bradycardia [None]
